FAERS Safety Report 14686679 (Version 1)
Quarter: 2018Q1

REPORT INFORMATION
  Report Type: Spontaneous
  Country: US (occurrence: US)
  Receive Date: 20180327
  Receipt Date: 20180327
  Transmission Date: 20180509
  Serious: No
  Sender: FDA-Public Use
  Company Number: US-TARO-2018TAR00181

PATIENT
  Age: 57 Year
  Sex: Female
  Weight: 61.22 kg

DRUGS (2)
  1. METRONIDAZOLE GEL USP, 1% [Suspect]
     Active Substance: METRONIDAZOLE
     Indication: ROSACEA
     Dosage: ^SMALLER THAN A PEA-SIZED AMOUNT,^ 1X/DAY BEFORE BED
     Route: 061
     Dates: start: 201802, end: 201802
  2. METRONIDAZOLE GEL USP, 1% [Suspect]
     Active Substance: METRONIDAZOLE
     Dosage: ^SMALLER THAN A PEA-SIZED AMOUNT,^ EVERY 48 HOURS BEFORE BED
     Route: 061
     Dates: start: 201802, end: 201802

REACTIONS (7)
  - Application site irritation [Recovered/Resolved]
  - Application site erythema [Not Recovered/Not Resolved]
  - Application site pain [Recovered/Resolved]
  - Product quality issue [Recovered/Resolved]
  - Inappropriate schedule of drug administration [Recovered/Resolved]
  - Product substitution issue [Recovered/Resolved]
  - Drug ineffective [Recovered/Resolved]

NARRATIVE: CASE EVENT DATE: 201802
